FAERS Safety Report 4399324-6 (Version None)
Quarter: 2004Q3

REPORT INFORMATION
  Report Type: 
  Country: None (occurrence: None)
  Receive Date: 20040712
  Receipt Date: 20040630
  Transmission Date: 20050211
  Serious: Yes (Other)
  Sender: FDA-Public Use
  Company Number: 2004-DE-03658GD

PATIENT
  Age: 24 Year
  Sex: Male

DRUGS (8)
  1. PREDNISONE TAB [Suspect]
     Indication: ASTHMA
     Dosage: AT LEAST 30 MG/D
  2. IPRATROPIUM BROMIDE [Suspect]
     Indication: RESPIRATORY DISTRESS
     Dosage: NEBULIZED IPRATROPIUM EVERY 1 TO 2 HOURS, IH
     Route: 055
  3. ALBUTEROL [Suspect]
     Indication: RESPIRATORY DISTRESS
     Dosage: NEUBLIZED ALBUTEROL EVERY 1 TO 2 HOURS, IH
     Route: 055
  4. METHYLPREDNISOLONE [Suspect]
     Indication: RESPIRATORY DISTRESS
     Dosage: 125 MG Q12H, IV
     Route: 042
  5. CEFOTAXIME SODIUM [Suspect]
     Indication: RESPIRATORY DISTRESS
  6. DOXYCYCLINE [Concomitant]
     Indication: RESPIRATORY DISTRESS
  7. SALMETEROL (SALMETEROL) [Concomitant]
  8. MONTELUKAST (MONTELUKAST) [Concomitant]

REACTIONS (11)
  - ASTHMA [None]
  - BLOOD PH INCREASED [None]
  - CONDITION AGGRAVATED [None]
  - CUSHINGOID [None]
  - MEDICATION ERROR [None]
  - PCO2 INCREASED [None]
  - PO2 INCREASED [None]
  - RESPIRATORY DISTRESS [None]
  - STRESS SYMPTOMS [None]
  - TACHYCARDIA [None]
  - VOCAL CORD DISORDER [None]
